FAERS Safety Report 19303063 (Version 1)
Quarter: 2021Q2

REPORT INFORMATION
  Report Type: Spontaneous
  Country: CN (occurrence: CN)
  Receive Date: 20210525
  Receipt Date: 20210525
  Transmission Date: 20210717
  Serious: Yes (Hospitalization)
  Sender: FDA-Public Use
  Company Number: CN-OXFORD PHARMACEUTICALS, LLC-2111937

PATIENT
  Age: 79 Year
  Sex: Female

DRUGS (4)
  1. CLARITHROMYCIN. [Interacting]
     Active Substance: CLARITHROMYCIN
  2. ALPRAZOLAM. [Suspect]
     Active Substance: ALPRAZOLAM
     Indication: INSOMNIA
  3. KETOTIFEN FUMARATE. [Suspect]
     Active Substance: KETOTIFEN FUMARATE
  4. ZOLPIDEM [Suspect]
     Active Substance: ZOLPIDEM TARTRATE

REACTIONS (5)
  - Muscular weakness [Recovered/Resolved]
  - Lethargy [Recovered/Resolved]
  - Amnesia [Unknown]
  - Toxicity to various agents [Unknown]
  - Drug interaction [Unknown]
